FAERS Safety Report 7762111-2 (Version None)
Quarter: 2011Q3

REPORT INFORMATION
  Report Type: 
  Country: None (occurrence: None)
  Receive Date: 20110920
  Receipt Date: 20110914
  Transmission Date: 20111222
  Serious: Yes (Hospitalization, Disabling, Other)
  Sender: FDA-Public Use
  Company Number: IE-PFIZER INC-2011090271

PATIENT
  Age: 51 Year
  Sex: Female

DRUGS (6)
  1. LEVOTHYROXINE SODIUM [Concomitant]
     Dosage: 50 UG, UNK
     Route: 048
  2. CARBOPLATIN [Concomitant]
     Indication: BREAST CANCER
     Dosage: UNK
     Route: 042
     Dates: start: 20101229, end: 20110518
  3. TRASTUZUMAB [Concomitant]
     Dosage: 6 MG/KG, UNK
     Route: 042
     Dates: start: 20101229
  4. LEVOTHYROXINE SODIUM [Concomitant]
     Indication: HYPOTHYROIDISM
     Dosage: 25 UG, UNK
     Route: 048
  5. DOCETAXEL [Concomitant]
     Indication: BREAST CANCER
     Dosage: 75 MG/M2, UNK
     Route: 042
     Dates: start: 20101229, end: 20110518
  6. TRAZODONE HCL [Suspect]
     Indication: MENOPAUSAL SYMPTOMS
     Dosage: 75 MG, 1X/DAY
     Route: 048
     Dates: start: 20110302, end: 20110315

REACTIONS (9)
  - HYPOKALAEMIA [None]
  - DELIRIUM [None]
  - BURNING SENSATION [None]
  - WHITE BLOOD CELL COUNT INCREASED [None]
  - ENCEPHALOPATHY [None]
  - GRAND MAL CONVULSION [None]
  - SEROTONIN SYNDROME [None]
  - DYSKINESIA [None]
  - CONFUSIONAL STATE [None]
